FAERS Safety Report 7797181-9 (Version None)
Quarter: 2011Q4

REPORT INFORMATION
  Report Type: 
  Country: None (occurrence: None)
  Receive Date: 20111005
  Receipt Date: 20110922
  Transmission Date: 20120403
  Serious: Yes (Other)
  Sender: FDA-Public Use
  Company Number: PHHY2011BR84942

PATIENT
  Age: 77 Year
  Sex: Male

DRUGS (2)
  1. DIOVAN HCT [Suspect]
     Dosage: 1 DF (160MG OF VALS AND 12.5MG OF HYDR) DAILY
  2. DIOVAN HCT [Suspect]
     Dosage: 1 DF (320MG OF VALS AND 12.5MG OF HYDR) DAILY

REACTIONS (7)
  - DIASTOLIC DYSFUNCTION [None]
  - AORTIC DILATATION [None]
  - BLOOD PRESSURE INADEQUATELY CONTROLLED [None]
  - LEFT VENTRICULAR HYPERTROPHY [None]
  - BLOOD PRESSURE DIASTOLIC ABNORMAL [None]
  - HEART VALVE INCOMPETENCE [None]
  - VENTRICULAR EXTRASYSTOLES [None]
